FAERS Safety Report 8764978 (Version 2)
Quarter: 2012Q4

REPORT INFORMATION
  Report Type: 
  Country: US (occurrence: US)
  Receive Date: 20120903
  Receipt Date: 20121113
  Transmission Date: 20130627
  Serious: No
  Sender: FDA-Public Use
  Company Number: US-009507513-1209USA000137

PATIENT
  Sex: Female

DRUGS (1)
  1. TICE BCG LIVE [Suspect]
     Indication: BLADDER CANCER
     Dosage: UNK
     Route: 043

REACTIONS (4)
  - Hypersensitivity [Recovering/Resolving]
  - Oedema peripheral [Unknown]
  - Erythema [Unknown]
  - Accidental exposure to product [Unknown]
